FAERS Safety Report 5723633-9 (Version None)
Quarter: 2008Q2

REPORT INFORMATION
  Report Type: 
  Country: None (occurrence: None)
  Receive Date: 20080425
  Receipt Date: 20080417
  Transmission Date: 20081010
  Serious: Yes (Hospitalization)
  Sender: FDA-Public Use
  Company Number: 2008-02484

PATIENT
  Age: 71 Year
  Sex: Male

DRUGS (1)
  1. ZONISAMIDE [Suspect]
     Indication: CONVULSION
     Dosage: 300 MG, DAILY,
     Dates: start: 20070101, end: 20070101

REACTIONS (3)
  - CONDITION AGGRAVATED [None]
  - HUMAN HERPESVIRUS 6 INFECTION [None]
  - TOXIC EPIDERMAL NECROLYSIS [None]
